FAERS Safety Report 8515558-0 (Version None)
Quarter: 2012Q3

REPORT INFORMATION
  Report Type: 
  Country: None (occurrence: None)
  Receive Date: 20120717
  Receipt Date: 20120709
  Transmission Date: 20120928
  Serious: Yes (Hospitalization)
  Sender: FDA-Public Use
  Company Number: GXKR2010GB09119

PATIENT
  Age: 62 Year
  Sex: Male

DRUGS (4)
  1. DILTIAZEM HYDROCHLORIDE [Suspect]
     Dosage: 2.5 G, (TOTAL)
     Route: 065
  2. ACETYLSALICYLIC ACID SRT [Suspect]
     Route: 065
  3. ISOSORBIDE MONONITRATE [Suspect]
     Route: 065
  4. ATORVASTATIN [Suspect]
     Route: 065

REACTIONS (8)
  - RENAL FAILURE ACUTE [None]
  - ACIDOSIS [None]
  - INTENTIONAL OVERDOSE [None]
  - HYPOTENSION [None]
  - VISION BLURRED [None]
  - GAIT DISTURBANCE [None]
  - HYPERKALAEMIA [None]
  - VOMITING [None]
